FAERS Safety Report 15491125 (Version 1)
Quarter: 2018Q4

REPORT INFORMATION
  Report Type: Spontaneous
  Country: US (occurrence: US)
  Receive Date: 20181012
  Receipt Date: 20181012
  Transmission Date: 20190205
  Serious: No
  Sender: FDA-Public Use
  Company Number: US-ASTRAZENECA-2018SF28793

PATIENT
  Age: 62 Year
  Sex: Female
  Weight: 77.1 kg

DRUGS (14)
  1. VALSARTAN. [Concomitant]
     Active Substance: VALSARTAN
     Dates: end: 201807
  2. INSULIN [Concomitant]
     Active Substance: INSULIN NOS
     Dates: start: 2010
  3. METOPROLOL SUCCINATE. [Suspect]
     Active Substance: METOPROLOL SUCCINATE
     Indication: CARDIAC DISORDER
     Route: 048
     Dates: start: 2013
  4. CRESTOR [Suspect]
     Active Substance: ROSUVASTATIN CALCIUM
     Indication: BLOOD CHOLESTEROL
     Route: 048
     Dates: start: 2018
  5. CRESTOR [Suspect]
     Active Substance: ROSUVASTATIN CALCIUM
     Indication: BLOOD CHOLESTEROL
     Dosage: ROSUVASTATIN 20 MG DAILY
     Route: 048
     Dates: start: 2008, end: 2008
  6. COQ10 [Concomitant]
     Active Substance: UBIDECARENONE
     Indication: VITAMIN D DEFICIENCY
  7. ASPIRIN. [Concomitant]
     Active Substance: ASPIRIN
  8. OLMESARTAN [Concomitant]
     Active Substance: OLMESARTAN
     Dosage: DAILY
  9. TRULICITY [Concomitant]
     Active Substance: DULAGLUTIDE
     Indication: TYPE 2 DIABETES MELLITUS
  10. METFORMIN [Concomitant]
     Active Substance: METFORMIN HYDROCHLORIDE
     Indication: DIABETES MELLITUS
     Dates: start: 2008
  11. JARDIANCE [Concomitant]
     Active Substance: EMPAGLIFLOZIN
  12. OLMESARTAN [Concomitant]
     Active Substance: OLMESARTAN
     Dates: start: 201807
  13. VASCEPA [Concomitant]
     Active Substance: ICOSAPENT ETHYL
     Route: 048
  14. CRESTOR [Suspect]
     Active Substance: ROSUVASTATIN CALCIUM
     Indication: BLOOD CHOLESTEROL
     Route: 048
     Dates: start: 2018, end: 2018

REACTIONS (4)
  - Fatigue [Unknown]
  - Dizziness [Recovered/Resolved]
  - Muscle spasms [Not Recovered/Not Resolved]
  - Eye swelling [Unknown]

NARRATIVE: CASE EVENT DATE: 2018
